FAERS Safety Report 4931655-0 (Version None)
Quarter: 2006Q1

REPORT INFORMATION
  Report Type: 
  Country: None (occurrence: None)
  Receive Date: 20060303
  Receipt Date: 20051212
  Transmission Date: 20060701
  Serious: No
  Sender: FDA-Public Use
  Company Number: US-BRISTOL-MYERS SQUIBB COMPANY-13213053

PATIENT
  Age: 60 Year
  Sex: Female
  Weight: 59 kg

DRUGS (5)
  1. ERBITUX [Suspect]
     Indication: RECTAL CANCER
     Route: 042
     Dates: start: 20050101, end: 20050101
  2. IRINOTECAN HCL [Concomitant]
     Route: 042
     Dates: start: 20050101
  3. FLUOROURACIL [Concomitant]
     Route: 040
     Dates: start: 20050101
  4. FLUOROURACIL [Concomitant]
     Dosage: 3000 MG IV INFUSED OVER 46 HOURS.
     Route: 041
     Dates: start: 20050101
  5. LEUCOVORIN CALCIUM [Concomitant]
     Route: 042
     Dates: start: 20050101

REACTIONS (7)
  - DIARRHOEA [None]
  - FATIGUE [None]
  - INCONTINENCE [None]
  - NAUSEA [None]
  - PAIN [None]
  - PYREXIA [None]
  - VOMITING [None]
